FAERS Safety Report 4762970-1 (Version None)
Quarter: 2005Q3

REPORT INFORMATION
  Report Type: 
  Country: None (occurrence: None)
  Receive Date: 20050907
  Receipt Date: 20050830
  Transmission Date: 20060218
  Serious: Yes (Hospitalization)
  Sender: FDA-Public Use
  Company Number: US-MERCK-0508USA04821

PATIENT
  Age: 60 Year
  Sex: Male

DRUGS (4)
  1. SINGULAIR [Suspect]
     Indication: HYPERSENSITIVITY
     Route: 048
     Dates: start: 20050531, end: 20050101
  2. [THERAPY UNSPECIFIED] [Concomitant]
     Route: 065
  3. PRINIVIL [Concomitant]
     Route: 065
  4. XALACOM [Concomitant]
     Route: 065

REACTIONS (1)
  - PAIN [None]
